FAERS Safety Report 23158688 (Version 2)
Quarter: 2023Q4

REPORT INFORMATION
  Report Type: Other
  Country: DE (occurrence: None)
  Receive Date: 20231108
  Receipt Date: 20231114
  Transmission Date: 20240110
  Serious: Yes (Hospitalization)
  Sender: FDA-Public Use
  Company Number: DE-ROCHE-3449124

PATIENT
  Age: 52 Year
  Sex: Female

DRUGS (4)
  1. OCREVUS [Suspect]
     Active Substance: OCRELIZUMAB
     Indication: Multiple sclerosis
     Route: 065
  2. KESIMPTA [Suspect]
     Active Substance: OFATUMUMAB
     Indication: Multiple sclerosis
     Route: 065
  3. INTERFERON [Concomitant]
     Active Substance: INTERFERON
  4. TYSABRI [Concomitant]
     Active Substance: NATALIZUMAB

REACTIONS (6)
  - Multiple sclerosis [Unknown]
  - COVID-19 [Unknown]
  - Pneumonia [Unknown]
  - Sepsis [Unknown]
  - Coma [Unknown]
  - Drug intolerance [Unknown]
